FAERS Safety Report 5535284-X (Version None)
Quarter: 2007Q4

REPORT INFORMATION
  Report Type: 
  Country: None (occurrence: None)
  Receive Date: 20071119
  Receipt Date: 20070907
  Transmission Date: 20080405
  Serious: No
  Sender: FDA-Public Use
  Company Number: TPA2007A01887

PATIENT
  Age: 71 Year
  Sex: Female
  Weight: 64.4108 kg

DRUGS (17)
  1. ROZEREM [Suspect]
     Indication: INSOMNIA
     Dosage: 8 MG, QHS, PER ORAL
     Route: 048
     Dates: start: 20070101
  2. GLUCOPHAGE [Concomitant]
  3. GLIPIZIDE [Concomitant]
  4. BONIVA [Concomitant]
  5. CLONAZEPAM (CLONAZEPAM) (TABLETS) [Concomitant]
  6. LOVASTATIN [Concomitant]
  7. ZONISAMIDE (ZONISAMIDE) (TABLETS) [Concomitant]
  8. PLAVIX [Concomitant]
  9. LISINOPRIL [Concomitant]
  10. VICODIN (PARACETAMOL, HYDROCODONE BITARTRATE) (TABLETS) [Concomitant]
  11. MORPHINE (MORPHINE) (TABLETS) [Concomitant]
  12. PERCOCET [Concomitant]
  13. FISH OIL (FISH OIL) [Concomitant]
  14. MULTIVITAMIN [Concomitant]
  15. CALTRATE (CALCIUM CARBONATE) [Concomitant]
  16. ASPIRIN [Concomitant]
  17. CYMBALTA [Concomitant]

REACTIONS (2)
  - BLOOD GLUCOSE INCREASED [None]
  - GLYCOSYLATED HAEMOGLOBIN INCREASED [None]
